FAERS Safety Report 12723574 (Version 1)
Quarter: 2016Q3

REPORT INFORMATION
  Report Type: Spontaneous
  Country: US (occurrence: US)
  Receive Date: 20160908
  Receipt Date: 20160908
  Transmission Date: 20161109
  Serious: No
  Sender: FDA-Public Use
  Company Number: US-BAYER-2016-134215

PATIENT
  Age: 57 Year
  Sex: Female
  Weight: 97.96 kg

DRUGS (2)
  1. BAYER ASPIRIN REGIMEN CHEWABLE LOW DOSE ASPIRIN ORANGE [Suspect]
     Active Substance: ASPIRIN
     Indication: HEADACHE
     Dosage: 2 DF, Q4HR, AS NEEDED
     Route: 048
  2. ALEVE [Suspect]
     Active Substance: NAPROXEN SODIUM
     Indication: HEADACHE
     Dosage: UNK

REACTIONS (2)
  - Drug ineffective [Unknown]
  - Headache [None]

NARRATIVE: CASE EVENT DATE: 201606
